FAERS Safety Report 4592212-1 (Version None)
Quarter: 2005Q1

REPORT INFORMATION
  Report Type: 
  Country: None (occurrence: None)
  Receive Date: 20050228
  Receipt Date: 20050215
  Transmission Date: 20050727
  Serious: Yes (Hospitalization)
  Sender: FDA-Public Use
  Company Number: JP-JNJFOC-20050104014

PATIENT
  Sex: Female
  Weight: 47 kg

DRUGS (15)
  1. REMICADE [Suspect]
     Route: 042
  2. REMICADE [Suspect]
     Indication: RHEUMATOID ARTHRITIS
     Route: 042
  3. METHOTREXATE [Suspect]
     Route: 049
  4. METHOTREXATE [Suspect]
     Indication: RHEUMATOID ARTHRITIS
     Route: 049
  5. PREDNISOLONE [Suspect]
     Route: 049
  6. PREDNISOLONE [Suspect]
     Indication: RHEUMATOID ARTHRITIS
     Route: 049
  7. RHEUMATREX [Suspect]
     Route: 049
  8. RHEUMATREX [Suspect]
     Indication: RHEUMATOID ARTHRITIS
     Route: 049
  9. ACTONEL [Concomitant]
     Indication: OSTEOPOROSIS PROPHYLAXIS
     Route: 049
  10. NORVASC [Concomitant]
     Indication: HYPERTENSION
     Route: 049
  11. STARSIS [Concomitant]
     Route: 049
  12. TAKEPRON [Concomitant]
     Route: 049
  13. MUCOSTA [Concomitant]
     Route: 049
  14. URSO 250 [Concomitant]
     Route: 049
  15. BROPRESS [Concomitant]
     Indication: HYPERTENSION
     Route: 049

REACTIONS (3)
  - DRUG INTERACTION [None]
  - HEADACHE [None]
  - PNEUMOCYSTIS JIROVECI PNEUMONIA [None]
